FAERS Safety Report 24778105 (Version 8)
Quarter: 2025Q2

REPORT INFORMATION
  Report Type: Spontaneous
  Country: US (occurrence: US)
  Receive Date: 20241226
  Receipt Date: 20250505
  Transmission Date: 20250717
  Serious: Yes (Other)
  Sender: PFIZER
  Company Number: US-PFIZER INC-202400331263

PATIENT
  Age: 44 Year
  Sex: Female

DRUGS (2)
  1. TIVDAK [Suspect]
     Active Substance: TISOTUMAB VEDOTIN-TFTV
     Indication: Cervix cancer metastatic
     Dosage: 195 MG, EVERY 3 WEEKS
     Route: 042
     Dates: start: 20241112
  2. TIVDAK [Suspect]
     Active Substance: TISOTUMAB VEDOTIN-TFTV
     Dosage: 155.4 MG INFUSION EVERY 3 WEEKS

REACTIONS (9)
  - Urinary tract infection staphylococcal [Unknown]
  - Malignant neoplasm progression [Not Recovered/Not Resolved]
  - Cervix cancer metastatic [Not Recovered/Not Resolved]
  - Neuropathy peripheral [Unknown]
  - Eye disorder [Unknown]
  - Carbohydrate antigen 125 increased [Unknown]
  - Lymphoedema [Unknown]
  - Gait disturbance [Unknown]
  - Off label use [Unknown]
